FAERS Safety Report 7876123-1 (Version None)
Quarter: 2011Q4

REPORT INFORMATION
  Report Type: 
  Country: None (occurrence: None)
  Receive Date: 20111031
  Receipt Date: 20111024
  Transmission Date: 20120403
  Serious: Yes (Other)
  Sender: FDA-Public Use
  Company Number: US-ABBOTT-11P-163-0857966-00

PATIENT
  Sex: Female
  Weight: 65.83 kg

DRUGS (3)
  1. HUMIRA [Suspect]
     Indication: CROHN'S DISEASE
     Route: 058
     Dates: start: 20100301, end: 20110701
  2. VITAMIN TAB [Concomitant]
     Indication: VITAMIN SUPPLEMENTATION
  3. HUMIRA [Suspect]
     Dosage: REPEATED LOADING DOSE
     Dates: start: 20110926

REACTIONS (6)
  - INTESTINAL OBSTRUCTION [None]
  - ABSCESS INTESTINAL [None]
  - PYREXIA [None]
  - ABDOMINAL ABSCESS [None]
  - ABDOMINAL PAIN [None]
  - INJECTION SITE PAIN [None]
